FAERS Safety Report 8596873-1 (Version None)
Quarter: 2012Q3

REPORT INFORMATION
  Report Type: 
  Country: None (occurrence: None)
  Receive Date: 20120815
  Receipt Date: 20120801
  Transmission Date: 20120928
  Serious: Yes (Other)
  Sender: FDA-Public Use
  Company Number: DE-FRI-1000037759

PATIENT
  Sex: Female

DRUGS (16)
  1. LEVOTHYROXINE SODIUM [Concomitant]
     Dosage: 75 MG
  2. MEMANTINE HCL [Suspect]
  3. MEMANTINE HCL [Suspect]
  4. HALDOL [Concomitant]
     Indication: HALLUCINATION
  5. MEMANTINE HCL [Suspect]
     Indication: PAIN
     Dosage: 40 MG
     Dates: start: 20100714, end: 20100714
  6. MEMANTINE HCL [Suspect]
     Indication: COMPLEX REGIONAL PAIN SYNDROME
     Dosage: 60 MG
     Dates: start: 20100715, end: 20100715
  7. HALDOL [Concomitant]
     Indication: NAUSEA
     Dosage: 15 DROPS
  8. NOVALGIN [Concomitant]
     Indication: PAIN
     Dosage: 30-40 DROPS
     Route: 048
  9. MEMANTINE HCL [Suspect]
     Indication: NEURALGIA
     Dosage: 80 MG
     Dates: start: 20100716, end: 20100716
  10. MEMANTINE HCL [Suspect]
  11. MARCUMAR [Concomitant]
     Dates: start: 20090101
  12. LYRICA [Concomitant]
     Indication: PAIN
     Dosage: 100 MG
  13. MEMANTINE HCL [Suspect]
     Dosage: 20 MG
     Dates: start: 20100717, end: 20100717
  14. MEMANTINE HCL [Suspect]
  15. BISOPROLOL [Concomitant]
     Dosage: 5 MG
  16. CITALOPRAM HYDROBROMIDE [Concomitant]
     Dosage: 40 MG

REACTIONS (6)
  - RESTLESSNESS [None]
  - OFF LABEL USE [None]
  - SOMNOLENCE [None]
  - HYPERVENTILATION [None]
  - FEELING DRUNK [None]
  - ANXIETY [None]
